FAERS Safety Report 9774143 (Version 3)
Quarter: 2013Q4

REPORT INFORMATION
  Report Type: Report from Study
  Country: US (occurrence: US)
  Receive Date: 20131220
  Receipt Date: 20131231
  Transmission Date: 20140711
  Serious: Yes (Other)
  Sender: FDA-Public Use
  Company Number: US-ROCHE-GNE321406

PATIENT
  Sex: Male

DRUGS (6)
  1. NUTROPIN AQ [Suspect]
     Indication: HYPOPITUITARISM
     Dosage: ALTERNATING DAYS
     Route: 058
     Dates: start: 2011
  2. NUTROPIN AQ [Suspect]
     Dosage: ALTERNATING DAYS
     Route: 058
  3. NUTROPIN AQ [Suspect]
     Dosage: ALTERNATING DAYS
     Route: 058
  4. NUTROPIN AQ [Suspect]
     Route: 058
  5. NUTROPIN AQ [Suspect]
     Dosage: 0.3-0.35 MG, ALTERNATE DAYS
     Route: 058
  6. NUTROPIN AQ [Suspect]
     Dosage: 0.35MG - 0.4MG DEPENDING ON IF WORKS OUT OR NOT
     Route: 058

REACTIONS (6)
  - Brain neoplasm [Unknown]
  - Weight increased [Unknown]
  - Abdominal distension [Unknown]
  - Impaired healing [Not Recovered/Not Resolved]
  - Drug dose omission [Unknown]
  - Memory impairment [Unknown]
